FAERS Safety Report 21944515 (Version 1)
Quarter: 2023Q1

REPORT INFORMATION
  Report Type: Spontaneous
  Country: US (occurrence: None)
  Receive Date: 20230201
  Receipt Date: 20230201
  Transmission Date: 20230417
  Serious: No
  Sender: FDA-Public Use
  Company Number: None

PATIENT
  Age: 51 Year
  Sex: Male

DRUGS (8)
  1. ESOMEPRAZOLE [Suspect]
     Active Substance: ESOMEPRAZOLE
     Indication: Gastrooesophageal reflux disease
     Dosage: FREQUENCY : DAILY;?
     Dates: start: 201504, end: 201808
  2. PREVACID [Suspect]
     Active Substance: LANSOPRAZOLE
     Indication: Gastrooesophageal reflux disease
     Dosage: FREQUENCY : DAILY;?
     Route: 048
     Dates: start: 1999, end: 2001
  3. PROTONIX [Suspect]
     Active Substance: PANTOPRAZOLE SODIUM
     Indication: Gastrooesophageal reflux disease
     Dosage: FREQUENCY : DAILY;?
     Route: 048
     Dates: start: 2001, end: 2004
  4. NEXIUM [Suspect]
     Active Substance: ESOMEPRAZOLE MAGNESIUM
     Indication: Gastrooesophageal reflux disease
     Dosage: FREQUENCY : DAILY;?
     Route: 048
     Dates: start: 2005, end: 2014
  5. TOPROL XL [Concomitant]
     Active Substance: METOPROLOL SUCCINATE
  6. IMITREX [Concomitant]
     Active Substance: SUMATRIPTAN SUCCINATE
  7. CLARITIN [Concomitant]
     Active Substance: LORATADINE
  8. ZOLOFT [Concomitant]
     Active Substance: SERTRALINE HYDROCHLORIDE

REACTIONS (10)
  - Product use issue [None]
  - Drug ineffective [None]
  - Gastrooesophageal reflux disease [None]
  - Dyspepsia [None]
  - Insurance issue [None]
  - Gastritis [None]
  - Duodenitis [None]
  - Product substitution issue [None]
  - Condition aggravated [None]
  - Therapy cessation [None]

NARRATIVE: CASE EVENT DATE: 20160416
